FAERS Safety Report 20381226 (Version 1)
Quarter: 2022Q1

REPORT INFORMATION
  Report Type: Spontaneous
  Country: US (occurrence: US)
  Receive Date: 20220127
  Receipt Date: 20220127
  Transmission Date: 20220423
  Serious: Yes (Other)
  Sender: FDA-Public Use
  Company Number: US-BAUSCH-BL-2022-002054

PATIENT

DRUGS (2)
  1. SOOTHE NIGHT TIME [Suspect]
     Active Substance: MINERAL OIL\PETROLATUM
     Indication: Dry eye
     Route: 047
  2. SOOTHE NIGHT TIME [Suspect]
     Active Substance: MINERAL OIL\PETROLATUM
     Indication: Eye pruritus

REACTIONS (2)
  - Blindness transient [Unknown]
  - Foreign body sensation in eyes [Unknown]
